FAERS Safety Report 17002480 (Version 1)
Quarter: 2019Q4

REPORT INFORMATION
  Report Type: Spontaneous
  Country: US (occurrence: US)
  Receive Date: 20191107
  Receipt Date: 20191107
  Transmission Date: 20200122
  Serious: No
  Sender: FDA-Public Use
  Company Number: US-GLAXOSMITHKLINE-US2019196060

PATIENT
  Age: 16 Year
  Sex: Male

DRUGS (1)
  1. NICORETTE [Suspect]
     Active Substance: NICOTINE
     Indication: ELECTRONIC CIGARETTE USER
     Dosage: UNK

REACTIONS (3)
  - Product administered to patient of inappropriate age [Unknown]
  - Accidental exposure to product [Unknown]
  - Product use in unapproved indication [Unknown]
